FAERS Safety Report 16946889 (Version 1)
Quarter: 2019Q4

REPORT INFORMATION
  Report Type: Spontaneous
  Country: US (occurrence: US)
  Receive Date: 20190831
  Receipt Date: 20190831
  Transmission Date: 20200122
  Serious: No
  Sender: FDA-Public Use
  Company Number: None

PATIENT
  Age: 64 Year
  Sex: Male

DRUGS (1)
  1. SPRYCEL [Suspect]
     Active Substance: DASATINIB
     Dosage: ?          OTHER FREQUENCY:OTHER;?
     Route: 048

REACTIONS (2)
  - Platelet count decreased [None]
  - Red blood cell count decreased [None]

NARRATIVE: CASE EVENT DATE: 20190831
